FAERS Safety Report 19064268 (Version 1)
Quarter: 2021Q1

REPORT INFORMATION
  Report Type: Spontaneous
  Country: US (occurrence: US)
  Receive Date: 20210326
  Receipt Date: 20210326
  Transmission Date: 20210420
  Serious: Yes (Hospitalization, Other)
  Sender: FDA-Public Use
  Company Number: US-ALLERGAN-2112307US

PATIENT
  Sex: Male

DRUGS (4)
  1. ALPHAGAN P [Suspect]
     Active Substance: BRIMONIDINE TARTRATE
     Indication: EYE DISORDER
     Dosage: UNK
     Route: 047
  2. MULTIVITAMIN [Concomitant]
     Active Substance: VITAMINS
     Indication: VITAMIN SUPPLEMENTATION
  3. TIMOLOL UNK [Suspect]
     Active Substance: TIMOLOL
     Indication: EYE DISORDER
     Dosage: UNK
     Route: 047
  4. VITAMIN D3 [Concomitant]
     Active Substance: CHOLECALCIFEROL
     Indication: VITAMIN SUPPLEMENTATION

REACTIONS (8)
  - Polyp [Unknown]
  - Cataract [Unknown]
  - Cerebral haematoma [Recovered/Resolved]
  - Peripheral artery occlusion [Unknown]
  - Fall [Recovered/Resolved]
  - Blood cholesterol increased [Unknown]
  - Joint space narrowing [Unknown]
  - Carotid artery occlusion [Unknown]

NARRATIVE: CASE EVENT DATE: 202006
